FAERS Safety Report 5738014-1 (Version None)
Quarter: 2008Q2

REPORT INFORMATION
  Report Type: 
  Country: None (occurrence: None)
  Receive Date: 20080509
  Receipt Date: 20080428
  Transmission Date: 20081010
  Serious: Yes (Hospitalization)
  Sender: FDA-Public Use
  Company Number: 100#08#2008-02488

PATIENT
  Sex: Male

DRUGS (14)
  1. LITHIUM CARBONATE [Suspect]
     Indication: AGITATION
     Dosage: 1.7 G DAILY AT 18 WEEKS GESTATION TRANSPLACENTAL
     Route: 064
  2. LITHIUM CARBONATE [Suspect]
     Indication: ORAL INTAKE REDUCED
     Dosage: 1.7 G DAILY AT 18 WEEKS GESTATION TRANSPLACENTAL
     Route: 064
  3. LITHIUM CARBONATE [Suspect]
     Indication: POOR QUALITY SLEEP
     Dosage: 1.7 G DAILY AT 18 WEEKS GESTATION TRANSPLACENTAL
     Route: 064
  4. OLANZAPINE [Suspect]
     Indication: DRUG USE FOR UNKNOWN INDICATION
     Dosage: 20 MG TRANSPLACENTAL
     Route: 064
  5. CLONAZEPAM [Suspect]
     Indication: DRUG USE FOR UNKNOWN INDICATION
     Dosage: 0.5 TRANSPLACENTAL
     Route: 064
  6. RANITIDINE [Suspect]
     Indication: DRUG USE FOR UNKNOWN INDICATION
     Dosage: 50 MG TRANSPLACENTAL
     Route: 064
  7. METOCLOPRAMIDE [Suspect]
     Indication: DRUG USE FOR UNKNOWN INDICATION
     Dosage: 10 MG TRANSPLACENTAL
     Route: 064
  8. FOLIC ACID [Suspect]
     Indication: DRUG USE FOR UNKNOWN INDICATION
     Dosage: 500 MCG TRANSPLACENTAL
     Route: 064
  9. LACTULOSE [Suspect]
     Indication: DRUG USE FOR UNKNOWN INDICATION
     Dosage: TRANSPLACENTAL
     Route: 064
  10. THIOPENTONE (THIOPENTONE) [Suspect]
     Indication: DRUG USE FOR UNKNOWN INDICATION
     Dosage: 250 MG TRANSPLACENTAL
     Route: 064
  11. SODIUM CITRATE [Suspect]
     Indication: DRUG USE FOR UNKNOWN INDICATION
     Dosage: 30 ML TRANSPLACENTAL
     Route: 064
  12. SUXAMETHONIUM (SUXAMETHONIUM) [Suspect]
     Indication: DRUG USE FOR UNKNOWN INDICATION
     Dosage: 100 MG TRANSPLACENTAL
     Route: 064
  13. ISOFLURANE [Suspect]
     Indication: DRUG USE FOR UNKNOWN INDICATION
     Dosage: TRANSPLACENTAL
     Route: 064
  14. HARTMANN`S SOLUTION (SODIUM CHLORIDE, POTASSIUM CHLORIDE, CALCIUM CHLO [Suspect]
     Indication: DRUG USE FOR UNKNOWN INDICATION
     Dosage: 1 L TRANSPLACENTAL
     Route: 064

REACTIONS (6)
  - CAESAREAN SECTION [None]
  - MATERNAL DRUGS AFFECTING FOETUS [None]
  - NEONATAL DISORDER [None]
  - PREMATURE LABOUR [None]
  - THERAPEUTIC AGENT TOXICITY [None]
  - TWIN PREGNANCY [None]
